FAERS Safety Report 8479247-3 (Version None)
Quarter: 2012Q2

REPORT INFORMATION
  Report Type: 
  Country: None (occurrence: None)
  Receive Date: 20120629
  Receipt Date: 20120620
  Transmission Date: 20120825
  Serious: Yes (Hospitalization)
  Sender: FDA-Public Use
  Company Number: US-GLAXOSMITHKLINE-A0886848A

PATIENT
  Age: 55 Year
  Sex: Female
  Weight: 95.5 kg

DRUGS (9)
  1. AVANDIA [Suspect]
     Indication: DIABETES MELLITUS
     Dosage: 4MG TWICE PER DAY
     Route: 048
     Dates: start: 20010114, end: 20090501
  2. ATENOLOL [Concomitant]
  3. ZETIA [Concomitant]
  4. PRAVASTATIN [Concomitant]
  5. COZAAR [Concomitant]
  6. INSULIN [Concomitant]
  7. METFORMIN HCL [Concomitant]
  8. OMEPRAZOLE [Concomitant]
  9. HYDROCHLOROTHIAZIDE [Concomitant]

REACTIONS (5)
  - OEDEMA [None]
  - CORONARY ARTERY DISEASE [None]
  - CARDIAC FAILURE CONGESTIVE [None]
  - ANGINA PECTORIS [None]
  - MYOCARDIAL INFARCTION [None]
